FAERS Safety Report 15621813 (Version 2)
Quarter: 2019Q1

REPORT INFORMATION
  Report Type: Spontaneous
  Country: US (occurrence: US)
  Receive Date: 20181115
  Receipt Date: 20190320
  Transmission Date: 20190417
  Serious: No
  Sender: FDA-Public Use
  Company Number: US-PFIZER INC-2018457134

PATIENT
  Age: 47 Year
  Sex: Female

DRUGS (3)
  1. ATORVASTATIN CALCIUM. [Suspect]
     Active Substance: ATORVASTATIN CALCIUM
     Indication: PROPHYLAXIS
     Dosage: 10 MG, 1X/DAY (10MG 1 TAB AT NIGHT)
     Dates: start: 20180925, end: 20181101
  2. METFORMIN [Concomitant]
     Active Substance: METFORMIN HYDROCHLORIDE
     Dosage: 500 MG, DAILY
     Dates: start: 201711
  3. LOSARTAN. [Concomitant]
     Active Substance: LOSARTAN
     Dosage: 25 MG, DAILY
     Dates: start: 20180925

REACTIONS (2)
  - Headache [Recovered/Resolved]
  - Tendon pain [Recovered/Resolved]

NARRATIVE: CASE EVENT DATE: 20181018
